FAERS Safety Report 18406592 (Version 1)
Quarter: 2020Q4

REPORT INFORMATION
  Report Type: Not Available
  Country: US (occurrence: US)
  Receive Date: 20201021
  Receipt Date: 20201021
  Transmission Date: 20210114
  Serious: No
  Sender: FDA-Public Use
  Company Number: US-NEUROCRINE BIOSCIENCES INC.-2020NBI03681

PATIENT
  Age: 62 Year
  Sex: Female

DRUGS (1)
  1. INGREZZA [Suspect]
     Active Substance: VALBENAZINE
     Indication: TARDIVE DYSKINESIA
     Route: 048
     Dates: start: 20200930, end: 20201004

REACTIONS (3)
  - Vision blurred [Recovered/Resolved]
  - Dyspnoea [Recovering/Resolving]
  - Ocular discomfort [Recovered/Resolved]

NARRATIVE: CASE EVENT DATE: 2020
